FAERS Safety Report 10960812 (Version 1)
Quarter: 2015Q1

REPORT INFORMATION
  Report Type: Spontaneous
  Country: US (occurrence: None)
  Receive Date: 20150326
  Receipt Date: 20150326
  Transmission Date: 20150721
  Serious: No
  Sender: FDA-Public Use
  Company Number: None

PATIENT
  Age: 42 Year
  Sex: Male

DRUGS (1)
  1. METHIMAZOLE. [Suspect]
     Active Substance: METHIMAZOLE
     Dates: start: 201411, end: 201501

REACTIONS (2)
  - Jaundice [None]
  - Cholestatic liver injury [None]

NARRATIVE: CASE EVENT DATE: 20150225
